FAERS Safety Report 10610938 (Version 1)
Quarter: 2014Q4

REPORT INFORMATION
  Report Type: Spontaneous
  Country: US (occurrence: US)
  Receive Date: 20141126
  Receipt Date: 20141126
  Transmission Date: 20150529
  Serious: No
  Sender: FDA-Public Use
  Company Number: US-MALLINCKRODT-T201403362

PATIENT
  Sex: Male

DRUGS (1)
  1. GABLOFEN [Suspect]
     Active Substance: BACLOFEN
     Indication: MUSCLE SPASTICITY
     Dosage: 250 MCG/DAY
     Route: 037

REACTIONS (6)
  - Device leakage [Unknown]
  - Irritability [Unknown]
  - Pruritus [Unknown]
  - Muscle spasticity [Unknown]
  - Underdose [Unknown]
  - Hypertonia [Unknown]
